APPROVED DRUG PRODUCT: NATEGLINIDE
Active Ingredient: NATEGLINIDE
Strength: 120MG
Dosage Form/Route: TABLET;ORAL
Application: A077463 | Product #002 | TE Code: AB
Applicant: STRIDES PHARMA INTERNATIONAL AG
Approved: Sep 9, 2009 | RLD: No | RS: No | Type: RX